FAERS Safety Report 18056570 (Version 1)
Quarter: 2020Q3

REPORT INFORMATION
  Report Type: Spontaneous
  Country: ES (occurrence: ES)
  Receive Date: 20200722
  Receipt Date: 20200722
  Transmission Date: 20201103
  Serious: Yes (Hospitalization)
  Sender: FDA-Public Use
  Company Number: NVSC2020ES201094

PATIENT
  Age: 64 Year
  Sex: Male

DRUGS (2)
  1. FUROSEMIDE. [Suspect]
     Active Substance: FUROSEMIDE
     Indication: ASCITES
     Dosage: 100 MG, Q24H
     Route: 048
     Dates: start: 20190810
  2. ESPIRONOLACTONA [Suspect]
     Active Substance: SPIRONOLACTONE
     Indication: ASCITES
     Dosage: 100 MG, Q24H
     Route: 048
     Dates: start: 20190810

REACTIONS (1)
  - Hyponatraemia [Recovered/Resolved]

NARRATIVE: CASE EVENT DATE: 20190917
